FAERS Safety Report 4336635-4 (Version None)
Quarter: 2004Q2

REPORT INFORMATION
  Report Type: 
  Country: None (occurrence: None)
  Receive Date: 20040412
  Receipt Date: 20040407
  Transmission Date: 20050107
  Serious: Yes (Disabling)
  Sender: FDA-Public Use
  Company Number: US-MERCK-0404USA00893

PATIENT
  Age: 82 Year
  Sex: Female

DRUGS (7)
  1. FOSAMAX [Suspect]
     Indication: OSTEOPOROSIS
     Route: 048
     Dates: start: 20030825, end: 20040301
  2. ASPIRIN [Concomitant]
     Route: 065
  3. PLAVIX [Concomitant]
     Route: 065
  4. SYNTHROID [Concomitant]
     Route: 065
  5. MECLIZINE [Concomitant]
     Route: 065
  6. VIOXX [Concomitant]
     Route: 065
  7. VITAMINS (UNSPECIFIED) [Concomitant]
     Route: 065

REACTIONS (8)
  - BACK PAIN [None]
  - DYSPHAGIA [None]
  - EATING DISORDER [None]
  - NECK PAIN [None]
  - OROPHARYNGEAL SWELLING [None]
  - PHARYNX DISCOMFORT [None]
  - SWELLING [None]
  - TREATMENT NONCOMPLIANCE [None]
